FAERS Safety Report 6889842-0 (Version None)
Quarter: 2010Q3

REPORT INFORMATION
  Report Type: 
  Country: None (occurrence: None)
  Receive Date: 20100730
  Receipt Date: 20080523
  Transmission Date: 20110219
  Serious: No
  Sender: FDA-Public Use
  Company Number: US-PFIZER INC-2008045077

PATIENT
  Sex: Male
  Weight: 79.545 kg

DRUGS (3)
  1. LIPITOR [Suspect]
     Indication: BLOOD CHOLESTEROL ABNORMAL
     Route: 048
     Dates: start: 20070101, end: 20080501
  2. TRICOR [Concomitant]
  3. LEXAPRO [Concomitant]

REACTIONS (1)
  - MYALGIA [None]
